FAERS Safety Report 5175286-9 (Version None)
Quarter: 2006Q4

REPORT INFORMATION
  Report Type: 
  Country: None (occurrence: None)
  Receive Date: 20061211
  Receipt Date: 20061211
  Transmission Date: 20070319
  Serious: Yes (Hospitalization)
  Sender: FDA-Public Use
  Company Number: None

PATIENT
  Age: 60 Year
  Sex: Male
  Weight: 92.9874 kg

DRUGS (25)
  1. AMIODARONE HCL [Suspect]
     Indication: ATRIAL FIBRILLATION
     Dosage: SEE IMAGE
     Route: 042
     Dates: start: 20060926, end: 20060930
  2. ACETAMINOPHEN [Concomitant]
  3. ASPIRIN [Concomitant]
  4. ATORVASTATIN [Concomitant]
  5. BISACODYL [Concomitant]
  6. CALCIUM CHLORIDE IV [Concomitant]
  7. CEFAZOLIN [Concomitant]
  8. EFUROXIME [Concomitant]
  9. DOCUSATE [Concomitant]
  10. DOLASETRON [Concomitant]
  11. EPINEPHRINE [Concomitant]
  12. FAMOTIDINE [Concomitant]
  13. FUROSEMIDE [Concomitant]
  14. INSULIN LISPRO [Concomitant]
  15. REGULAR INSULIN [Concomitant]
  16. MEPERIDINE HCL [Concomitant]
  17. METOPROLOL SUCCINATE [Concomitant]
  18. MIDAZOLAM HYDROCHLORIDE [Concomitant]
  19. MORPHINE SULFATE [Concomitant]
  20. VANCOMYCIN [Concomitant]
  21. SODIUM BICARBONATE [Concomitant]
  22. PROMETHAZINE [Concomitant]
  23. POTASSIUM CHLORIDE [Concomitant]
  24. WARFARIN SODIUM [Concomitant]
  25. ZOLPIDEM TARTRATE [Concomitant]

REACTIONS (4)
  - CHEMICAL BURN OF SKIN [None]
  - INFUSION SITE REACTION [None]
  - INFUSION SITE VESICLES [None]
  - PURULENT DISCHARGE [None]
